FAERS Safety Report 8617589-9 (Version None)
Quarter: 2012Q3

REPORT INFORMATION
  Report Type: 
  Country: None (occurrence: None)
  Receive Date: 20120824
  Receipt Date: 20111121
  Transmission Date: 20120928
  Serious: No
  Sender: FDA-Public Use
  Company Number: US-ASTRAZENECA-2011SE70980

PATIENT

DRUGS (2)
  1. NEXIUM [Suspect]
     Indication: GASTROOESOPHAGEAL REFLUX DISEASE
     Route: 048
  2. SYMBICORT [Suspect]
     Indication: ASTHMA
     Dosage: 160/4.5 MCG, FREQUENCY UNKNOWN
     Route: 055

REACTIONS (3)
  - GASTROOESOPHAGEAL REFLUX DISEASE [None]
  - WHEEZING [None]
  - DRUG DOSE OMISSION [None]
